FAERS Safety Report 17329592 (Version 2)
Quarter: 2020Q1

REPORT INFORMATION
  Report Type: Report from Study
  Country: GB (occurrence: GB)
  Receive Date: 20200127
  Receipt Date: 20200228
  Transmission Date: 20200409
  Serious: Yes (Other)
  Sender: FDA-Public Use
  Company Number: GB-VERTEX PHARMACEUTICALS-2020-001254

PATIENT
  Age: 38 Year
  Sex: Male
  Weight: 80 kg

DRUGS (21)
  1. LEVEMIR [Concomitant]
     Active Substance: INSULIN DETEMIR
     Dosage: 10 INTERNATIONAL UNIT, QD
     Route: 058
     Dates: start: 20150127
  2. SALBUTAMOL [Concomitant]
     Active Substance: ALBUTEROL
     Dosage: 200 MICROGRAM, BID
     Route: 055
     Dates: start: 20140210
  3. VX-661/VX-770 [Suspect]
     Active Substance: IVACAFTOR\TEZACAFTOR
     Indication: CYSTIC FIBROSIS
     Dosage: 100 MG VX-661 QD, 150 MG VX-770 Q12H
     Route: 048
     Dates: start: 20191119
  4. COLISTIN [Concomitant]
     Active Substance: COLISTIN
     Dosage: UNK, TID
     Route: 042
     Dates: start: 20200203, end: 20200217
  5. SERETIDE [Concomitant]
     Active Substance: FLUTICASONE PROPIONATE\SALMETEROL XINAFOATE
     Dosage: UNK, BID
     Route: 055
     Dates: start: 20190501
  6. DEOXYRIBONUCLEIC ACID [Concomitant]
     Dosage: 2.5 MG, QD
     Dates: start: 20140210
  7. RANITIDINE. [Concomitant]
     Active Substance: RANITIDINE
     Dosage: 150 MG, BID
     Route: 048
     Dates: start: 20140210
  8. AZITHROMYCIN ANHYDROUS. [Concomitant]
     Active Substance: AZITHROMYCIN ANHYDROUS
     Dosage: 250 MG, QD
     Route: 048
     Dates: start: 20140210
  9. CAYSTON [Concomitant]
     Active Substance: AZTREONAM
     Dosage: 75 MG, TID
     Dates: start: 20161021
  10. PLACEBO [Suspect]
     Active Substance: UNSPECIFIED INGREDIENT
     Indication: CYSTIC FIBROSIS
     Dosage: UNK
     Route: 048
     Dates: start: 20191217
  11. BECONASE AQ [Concomitant]
     Active Substance: BECLOMETHASONE DIPROPIONATE MONOHYDRATE
     Dosage: 1 DOSAGE FORM, BID
     Route: 045
     Dates: start: 20190801
  12. NOVORAPID [Concomitant]
     Active Substance: INSULIN ASPART
     Dosage: 6 INTERNATIONAL UNIT, QD
     Route: 058
     Dates: start: 20160119
  13. SALBUTAMOL [Concomitant]
     Active Substance: ALBUTEROL
     Dosage: 2.5 MG, PRN
     Dates: start: 20150109
  14. URSODEOXYCHOLIC ACID [Concomitant]
     Active Substance: URSODIOL
     Dosage: 300 MG, BID
     Route: 048
     Dates: start: 20140210
  15. CIPROFLOXACIN. [Concomitant]
     Active Substance: CIPROFLOXACIN
     Dosage: 750 MG, BID
     Route: 048
     Dates: start: 20191230, end: 20200113
  16. PARAVIT [Concomitant]
     Active Substance: ACETAMINOPHEN\ASCORBIC ACID
     Dosage: 2 DOSAGE FORM, QD
     Route: 048
     Dates: start: 20190103
  17. MEROPENEM. [Concomitant]
     Active Substance: MEROPENEM
     Dosage: 1 GRAM, TID
     Route: 042
     Dates: start: 20200203, end: 20200217
  18. SALT [Concomitant]
     Active Substance: SODIUM CHLORIDE
     Dosage: 2 DOSAGE FORM, BID
     Route: 048
     Dates: start: 20170601
  19. COLOMYCIN [COLISTIN SULFATE] [Concomitant]
     Active Substance: COLISTIN SULFATE
     Dosage: 2 MEGAUNITS, BID
     Dates: start: 20190221
  20. LAXIDO [Concomitant]
     Active Substance: POLYETHYLENE GLYCOL 3350\POTASSIUM CHLORIDE\SODIUM BICARBONATE\SODIUM CHLORIDE
     Dosage: 1 SACHET, PRN
     Dates: start: 20140210
  21. CREON [Concomitant]
     Active Substance: PANCRELIPASE AMYLASE\PANCRELIPASE LIPASE\PANCRELIPASE PROTEASE
     Dosage: UNK
     Route: 048
     Dates: start: 20140210

REACTIONS (1)
  - Extrasystoles [Recovered/Resolved]

NARRATIVE: CASE EVENT DATE: 20200114
